FAERS Safety Report 8637526 (Version 2)
Quarter: 2012Q4

REPORT INFORMATION
  Report Type: 
  Country: FR (occurrence: FR)
  Receive Date: 20120627
  Receipt Date: 20121228
  Transmission Date: 20130627
  Serious: Yes (Hospitalization, Other)
  Sender: FDA-Public Use
  Company Number: FR-PFIZER INC-2012151649

PATIENT
  Age: 39 Year
  Sex: Male

DRUGS (3)
  1. VFEND [Suspect]
     Indication: PULMONARY ASPERGILLOSIS
     Dosage: 200 mg, 2x/day
     Route: 048
     Dates: start: 200911, end: 20110705
  2. PROGRAF [Suspect]
     Dosage: 1 mg, 2x/day
     Route: 048
     Dates: start: 20020304
  3. CORTANCYL [Concomitant]
     Dosage: UNK

REACTIONS (2)
  - Bowen^s disease [Recovered/Resolved with Sequelae]
  - Neoplasm malignant [Recovered/Resolved with Sequelae]
